FAERS Safety Report 12526236 (Version 1)
Quarter: 2016Q3

REPORT INFORMATION
  Report Type: Spontaneous
  Country: US (occurrence: None)
  Receive Date: 20160701
  Receipt Date: 20160701
  Transmission Date: 20161109
  Serious: No
  Sender: FDA-Public Use
  Company Number: None

PATIENT
  Age: 24 Year
  Sex: Female
  Weight: 51.26 kg

DRUGS (2)
  1. MIRENA [Suspect]
     Active Substance: LEVONORGESTREL
  2. MULTIVITAMIN WITH BIOTIN [Concomitant]

REACTIONS (3)
  - Insomnia [None]
  - Ovarian cyst [None]
  - Alopecia [None]

NARRATIVE: CASE EVENT DATE: 20160509
